FAERS Safety Report 18493874 (Version 1)
Quarter: 2020Q4

REPORT INFORMATION
  Report Type: Spontaneous
  Country: BW (occurrence: BW)
  Receive Date: 20201111
  Receipt Date: 20201111
  Transmission Date: 20210114
  Serious: No
  Sender: FDA-Public Use
  Company Number: BW-LUPIN PHARMACEUTICALS INC.-2020-06958

PATIENT
  Age: 32 Year
  Sex: Female

DRUGS (1)
  1. MISOPROSTOL. [Suspect]
     Active Substance: MISOPROSTOL
     Indication: LABOUR INDUCTION
     Dosage: 25 MICROGRAM EVERY 2 HOURS (FORMULATION: SOLUTION)
     Route: 048

REACTIONS (1)
  - Maternal exposure during pregnancy [Unknown]
